FAERS Safety Report 4937236-7 (Version None)
Quarter: 2006Q1

REPORT INFORMATION
  Report Type: 
  Country: None (occurrence: None)
  Receive Date: 20060309
  Receipt Date: 20060303
  Transmission Date: 20060701
  Serious: Yes (Other)
  Sender: FDA-Public Use
  Company Number: KR-JNJFOC-20060206109

PATIENT
  Sex: Female

DRUGS (2)
  1. REMINYL [Suspect]
     Indication: DEMENTIA ALZHEIMER'S TYPE
     Route: 048
  2. XANAPAM [Concomitant]
     Indication: AGITATION

REACTIONS (2)
  - BLOOD ALBUMIN DECREASED [None]
  - ORAL INTAKE REDUCED [None]
